FAERS Safety Report 5424839-9 (Version None)
Quarter: 2007Q3

REPORT INFORMATION
  Report Type: 
  Country: None (occurrence: None)
  Receive Date: 20070824
  Receipt Date: 20070816
  Transmission Date: 20080115
  Serious: Yes (Death, Hospitalization, Disabling)
  Sender: FDA-Public Use
  Company Number: US-AMGEN-US236415

PATIENT
  Sex: Male

DRUGS (17)
  1. DARBEPOETIN ALFA - BLINDED [Suspect]
     Indication: CARDIAC FAILURE
     Route: 058
     Dates: start: 20070213, end: 20070703
  2. ALBUTEROL SULFATE [Concomitant]
  3. ASPIRIN [Concomitant]
     Route: 048
  4. ATORVASTATIN CALCIUM [Concomitant]
     Route: 048
  5. ESOMEPRAZOLE MAGNESIUM [Concomitant]
     Route: 048
  6. FUROSEMIDE [Concomitant]
     Route: 048
  7. GUAIFENESIN DM [Concomitant]
     Route: 048
  8. ISOSORBIDE MONONITRATE [Concomitant]
     Route: 048
  9. LEUPROLIDE ACETATE [Concomitant]
  10. LISINOPRIL [Concomitant]
     Route: 048
  11. METOPROLOL SUCCINATE [Concomitant]
     Route: 048
  12. MORPHINE SULFATE [Concomitant]
  13. NITROGLYCERIN [Concomitant]
  14. PROCHLORPERAZINE MALEATE [Concomitant]
  15. RANOLAZINE [Concomitant]
     Route: 048
  16. SENNA [Concomitant]
  17. TRIMETHOPRIM [Concomitant]
     Route: 048

REACTIONS (2)
  - CARDIAC FAILURE CONGESTIVE [None]
  - DEATH [None]
